FAERS Safety Report 10919321 (Version 1)
Quarter: 2015Q1

REPORT INFORMATION
  Report Type: Spontaneous
  Country: US (occurrence: US)
  Receive Date: 20150316
  Receipt Date: 20150316
  Transmission Date: 20150721
  Serious: Yes (Hospitalization, Disabling, Other)
  Sender: FDA-Public Use
  Company Number: US-009507513-1106USA03614

PATIENT
  Sex: Female

DRUGS (2)
  1. FOSAMAX [Suspect]
     Active Substance: ALENDRONATE SODIUM
     Indication: OSTEOPOROSIS
     Dosage: 70 MG, UNK
     Route: 048
     Dates: start: 20030915, end: 200809
  2. ALENDRONATE SODIUM. [Suspect]
     Active Substance: ALENDRONATE SODIUM

REACTIONS (27)
  - Femoral neck fracture [Recovered/Resolved]
  - Open reduction of fracture [Unknown]
  - Gingival recession [Unknown]
  - Spinal compression fracture [Unknown]
  - Hyperthyroidism [Unknown]
  - Pelvic fracture [Unknown]
  - Femur fracture [Recovered/Resolved]
  - Osteoarthritis [Unknown]
  - Radiculopathy [Unknown]
  - Scoliosis [Unknown]
  - Bursitis [Unknown]
  - Tooth fracture [Unknown]
  - Bladder neoplasm surgery [Unknown]
  - Chest pain [Unknown]
  - Cystitis [Unknown]
  - Bronchitis [Unknown]
  - Dental implantation [Unknown]
  - Drug intolerance [Unknown]
  - Hypertension [Unknown]
  - Stomatitis [Unknown]
  - Tooth disorder [Unknown]
  - Spinal column stenosis [Unknown]
  - Sensitivity of teeth [Unknown]
  - Open reduction of fracture [Unknown]
  - Bladder neoplasm [Unknown]
  - Syncope [Unknown]
  - Renal cyst [Unknown]

NARRATIVE: CASE EVENT DATE: 20031103
